FAERS Safety Report 10413952 (Version 1)
Quarter: 2014Q3

REPORT INFORMATION
  Report Type: Spontaneous
  Country: IN (occurrence: None)
  Receive Date: 20140825
  Receipt Date: 20140825
  Transmission Date: 20150326
  Serious: Yes (Hospitalization)
  Sender: FDA-Public Use
  Company Number: AUR-APL-2014-08930

PATIENT
  Age: 35 Year
  Sex: Female

DRUGS (1)
  1. DIVALPROEX 500 MG (VALPROATE) UNKNOWN, 500MG [Suspect]
     Active Substance: VALPROATE SODIUM
     Indication: PRODUCT USED FOR UNKNOWN INDICATION
     Route: 048

REACTIONS (5)
  - Hyperammonaemic encephalopathy [None]
  - Coma scale abnormal [None]
  - Localised oedema [None]
  - Neurological decompensation [None]
  - Peritoneal dialysis [None]
